FAERS Safety Report 7635617-4 (Version None)
Quarter: 2011Q3

REPORT INFORMATION
  Report Type: 
  Country: None (occurrence: None)
  Receive Date: 20110726
  Receipt Date: 20110714
  Transmission Date: 20111222
  Serious: Yes (Hospitalization, Other)
  Sender: FDA-Public Use
  Company Number: PHHY2011AU53916

PATIENT
  Sex: Female

DRUGS (2)
  1. CLOZAPINE [Suspect]
     Dosage: 75 MG, UNK
     Dates: start: 19990624
  2. CLOZAPINE [Suspect]
     Dosage: 425 MG, UNK

REACTIONS (7)
  - UTERINE CANCER [None]
  - PLATELET COUNT INCREASED [None]
  - RED CELL DISTRIBUTION WIDTH INCREASED [None]
  - HAEMOGLOBIN DECREASED [None]
  - SMALL INTESTINAL OBSTRUCTION [None]
  - FAECAL INCONTINENCE [None]
  - ENDOMETRIAL HYPERPLASIA [None]
